FAERS Safety Report 9200921 (Version 4)
Quarter: 2013Q4

REPORT INFORMATION
  Report Type: Spontaneous
  Country: JP (occurrence: JP)
  Receive Date: 20130401
  Receipt Date: 20131107
  Transmission Date: 20140711
  Serious: Yes (Hospitalization)
  Sender: FDA-Public Use
  Company Number: JP-JNJFOC-20130316129

PATIENT
  Age: 62 Year
  Sex: Female
  Weight: 37 kg

DRUGS (21)
  1. SIMPONI [Suspect]
     Indication: RHEUMATOID ARTHRITIS
     Route: 058
     Dates: start: 20130314, end: 20130314
  2. SIMPONI [Suspect]
     Indication: RHEUMATOID ARTHRITIS
     Route: 058
     Dates: start: 20130214, end: 20130214
  3. SIMPONI [Suspect]
     Indication: RHEUMATOID ARTHRITIS
     Route: 058
     Dates: start: 20130124, end: 20130124
  4. SIMPONI [Suspect]
     Indication: RHEUMATOID ARTHRITIS
     Route: 058
     Dates: start: 20130117, end: 20130117
  5. PREDNISOLONE [Suspect]
     Indication: RHEUMATOID ARTHRITIS
     Route: 048
     Dates: start: 20130124
  6. PREDNISOLONE [Suspect]
     Indication: RHEUMATOID ARTHRITIS
     Route: 048
     Dates: start: 20130117, end: 20130123
  7. ISCOTIN [Concomitant]
     Indication: ANTIBIOTIC PROPHYLAXIS
     Route: 048
  8. MOHRUS TAPE [Concomitant]
     Indication: RHEUMATOID ARTHRITIS
     Route: 062
  9. PEON [Concomitant]
     Indication: PAIN
     Route: 048
  10. MUCOSTA [Concomitant]
     Indication: GASTROINTESTINAL DISORDER THERAPY
     Route: 048
  11. ACTONEL [Concomitant]
     Indication: OSTEOPOROSIS
     Route: 048
  12. EDIROL [Concomitant]
     Indication: OSTEOPOROSIS
     Route: 048
  13. NEXIUM [Concomitant]
     Indication: PROPHYLAXIS AGAINST GASTROINTESTINAL ULCER
     Route: 048
     Dates: start: 20130117
  14. GLIMEPIRIDE [Concomitant]
     Indication: DIABETES MELLITUS
     Route: 048
  15. GLACTIV [Concomitant]
     Indication: DIABETES MELLITUS
     Route: 048
  16. TALION [Concomitant]
     Indication: GLAUCOMA
     Route: 048
  17. COSOPT [Concomitant]
     Indication: GLAUCOMA
     Route: 047
  18. LUMIGAN [Concomitant]
     Indication: GLAUCOMA
     Route: 047
  19. ALPHAGAN [Concomitant]
     Indication: GLAUCOMA
     Route: 047
  20. SULBACTAM-AMPICILLIN [Concomitant]
     Indication: PNEUMONIA BACTERIAL
     Route: 042
     Dates: start: 20130319, end: 20130326
  21. CLARITHROMYCIN [Concomitant]
     Indication: ATYPICAL MYCOBACTERIAL PNEUMONIA
     Route: 048
     Dates: start: 20130327

REACTIONS (1)
  - Atypical mycobacterial pneumonia [Recovering/Resolving]
